FAERS Safety Report 24543163 (Version 1)
Quarter: 2024Q4

REPORT INFORMATION
  Report Type: Spontaneous
  Country: US (occurrence: US)
  Receive Date: 20241024
  Receipt Date: 20241024
  Transmission Date: 20250114
  Serious: Yes (Other)
  Sender: RANBAXY
  Company Number: US-SUN PHARMACEUTICAL INDUSTRIES LTD-2024R1-474422

PATIENT
  Age: 11 Day

DRUGS (1)
  1. ASPIRIN [Suspect]
     Active Substance: ASPIRIN
     Indication: Antiplatelet therapy
     Dosage: 5.6 MILLIGRAM/KILOGRAM
     Route: 065

REACTIONS (2)
  - Thrombolysis [Unknown]
  - Jugular vein thrombosis [Unknown]
